FAERS Safety Report 7161905-4 (Version None)
Quarter: 2010Q4

REPORT INFORMATION
  Report Type: 
  Country: None (occurrence: None)
  Receive Date: 20101215
  Receipt Date: 20100716
  Transmission Date: 20110411
  Serious: Yes (Disabling, Other)
  Sender: FDA-Public Use
  Company Number: CO-PFIZER INC-2010049187

PATIENT
  Age: 76 Year
  Sex: Female

DRUGS (4)
  1. LYRICA [Suspect]
     Indication: NEURALGIA
     Dosage: 75 MG, 1X/DAY
     Route: 048
     Dates: start: 20080601
  2. CORTISONE [Concomitant]
     Indication: ARTHRITIS
     Dosage: 5 MG, 1X/DAY
     Dates: start: 20091001
  3. LOSARTAN [Concomitant]
     Indication: HYPERTENSION
     Dosage: 50 MG, 1X/DAY
  4. ORENCIA [Concomitant]
     Indication: ARTHRITIS
     Dosage: UNK

REACTIONS (3)
  - ABASIA [None]
  - ARTHRITIS [None]
  - DRUG INEFFECTIVE [None]
